FAERS Safety Report 7130754-5 (Version None)
Quarter: 2010Q4

REPORT INFORMATION
  Report Type: 
  Country: None (occurrence: None)
  Receive Date: 20101201
  Receipt Date: 20101122
  Transmission Date: 20110411
  Serious: Yes (Other)
  Sender: FDA-Public Use
  Company Number: IT-ASTRAZENECA-2010SE55352

PATIENT
  Age: 37 Year
  Sex: Female

DRUGS (3)
  1. ESOMEPRAZOLE [Suspect]
     Indication: DYSPEPSIA
     Dosage: 20 MG/DAY IN THE MORNING PLUS 20 MG/DAY IN THE EVENING
     Route: 048
  2. ESOMEPRAZOLE [Suspect]
     Dosage: 20 MG/DAY IN THE EVENING
     Route: 048
  3. ESOMEPRAZOLE [Suspect]
     Dosage: 20 MG/DAY IN THE EVENING
     Route: 048

REACTIONS (2)
  - BLOOD CHROMOGRANIN A INCREASED [None]
  - BLOOD PARATHYROID HORMONE INCREASED [None]
